FAERS Safety Report 15227561 (Version 1)
Quarter: 2018Q3

REPORT INFORMATION
  Report Type: Spontaneous
  Country: CN (occurrence: CN)
  Receive Date: 20180801
  Receipt Date: 20180801
  Transmission Date: 20181010
  Serious: Yes (Other)
  Sender: FDA-Public Use
  Company Number: CN-BAYER-2018-144149

PATIENT
  Age: 65 Year
  Sex: Male
  Weight: 81.5 kg

DRUGS (2)
  1. WARFARIN SODIUM. [Suspect]
     Active Substance: WARFARIN SODIUM
     Indication: COAGULOPATHY
     Dosage: 2.25 G, QD
     Route: 048
     Dates: start: 20180510, end: 20180625
  2. BAYASPIRIN 100 MG [Suspect]
     Active Substance: ASPIRIN
     Indication: COAGULOPATHY
     Dosage: 0.1 G, QD
     Route: 048
     Dates: start: 20180510, end: 20180625

REACTIONS (1)
  - Platelet disorder [Recovering/Resolving]

NARRATIVE: CASE EVENT DATE: 20180625
